FAERS Safety Report 7318700-2 (Version None)
Quarter: 2011Q1

REPORT INFORMATION
  Report Type: 
  Country: None (occurrence: None)
  Receive Date: 20110228
  Receipt Date: 20110216
  Transmission Date: 20110831
  Serious: No
  Sender: FDA-Public Use
  Company Number: FR-JNJFOC-20110106972

PATIENT
  Sex: Male
  Weight: 83 kg

DRUGS (11)
  1. LEXOMIL [Suspect]
     Indication: ILL-DEFINED DISORDER
     Route: 065
  2. LEVOTHYROX [Concomitant]
     Route: 065
  3. FENTANYL CITRATE [Suspect]
     Indication: CANCER PAIN
     Route: 048
  4. DURAGESIC-100 [Suspect]
     Route: 062
  5. MOVIPREP [Concomitant]
     Indication: CONSTIPATION
     Route: 065
  6. FENTANYL CITRATE [Suspect]
     Route: 048
  7. DURAGESIC-100 [Suspect]
     Indication: CANCER PAIN
     Route: 062
  8. AMLODIPINE [Concomitant]
     Route: 048
  9. FORTZAAR [Concomitant]
     Route: 065
  10. DURAGESIC-100 [Suspect]
     Route: 062
  11. DURAGESIC-100 [Suspect]
     Route: 062

REACTIONS (4)
  - INAPPROPRIATE SCHEDULE OF DRUG ADMINISTRATION [None]
  - AGGRESSION [None]
  - DRUG INEFFECTIVE [None]
  - SOMNOLENCE [None]
